FAERS Safety Report 9165450 (Version 1)
Quarter: 2013Q1

REPORT INFORMATION
  Report Type: Spontaneous
  Country: US (occurrence: None)
  Receive Date: 20130301
  Receipt Date: 20130301
  Transmission Date: 20140127
  Serious: Yes (Life-Threatening, Other)
  Sender: FDA-Public Use
  Company Number: 1587897

PATIENT
  Sex: 0

DRUGS (1)
  1. BUPIVACAINE HCL INJECTION, USP, 0.5%, 50 ML/MD FLIPTOP VIAL (BUPIVACAINE HYDROCHLORIDE) [Suspect]

REACTIONS (5)
  - Convulsion [None]
  - Cardiac arrest [None]
  - Medication error [None]
  - Product label issue [None]
  - Wrong drug administered [None]
